FAERS Safety Report 23920336 (Version 3)
Quarter: 2024Q3

REPORT INFORMATION
  Report Type: Spontaneous
  Country: US (occurrence: US)
  Receive Date: 20240530
  Receipt Date: 20240912
  Transmission Date: 20241017
  Serious: Yes (Other)
  Sender: ABBVIE
  Company Number: US-ABBVIE-5780508

PATIENT
  Sex: Male
  Weight: 99 kg

DRUGS (7)
  1. LUPRON DEPOT [Suspect]
     Active Substance: LEUPROLIDE ACETATE
     Indication: Product used for unknown indication
     Route: 030
  2. ZYTIGA [Concomitant]
     Active Substance: ABIRATERONE ACETATE
     Indication: Product used for unknown indication
  3. ABIRATERONE [Concomitant]
     Active Substance: ABIRATERONE
     Indication: Product used for unknown indication
     Dosage: 1 TABLET 4 TIMES A DAY ON AN EMPTY STOMACH FOR 30 DAYS
     Route: 048
  4. AMLODIPINE [Concomitant]
     Active Substance: AMLODIPINE BESYLATE
     Indication: Product used for unknown indication
  5. LEVOFLOXACIN [Concomitant]
     Active Substance: LEVOFLOXACIN
     Indication: Product used for unknown indication
     Dosage: 750 MG TABLET: 1 TABLET TAKE THE MORNING OF THE PROCEDURE FOR 1 DAYS
  6. PREDNISONE [Concomitant]
     Active Substance: PREDNISONE
     Indication: Product used for unknown indication
     Dosage: : 1 TABLET 2 TIMES A DAY FOR 90 DAYS
  7. VITAMIN D3 [Concomitant]
     Active Substance: CHOLECALCIFEROL
     Indication: Product used for unknown indication

REACTIONS (11)
  - Pseudostroke [Unknown]
  - Unresponsive to stimuli [Recovered/Resolved]
  - Stenosis [Unknown]
  - Feeling abnormal [Recovered/Resolved]
  - Mental status changes [Unknown]
  - Atrial fibrillation [Not Recovered/Not Resolved]
  - Cerebral artery occlusion [Unknown]
  - Cerebrovascular disorder [Unknown]
  - Hypokalaemia [Unknown]
  - Staring [Unknown]
  - Asthenia [Unknown]

NARRATIVE: CASE EVENT DATE: 20240101
